FAERS Safety Report 17689065 (Version 1)
Quarter: 2020Q2

REPORT INFORMATION
  Report Type: Report from Study
  Country: CA (occurrence: CA)
  Receive Date: 20200421
  Receipt Date: 20200421
  Transmission Date: 20200714
  Serious: Yes (Other)
  Sender: FDA-Public Use
  Company Number: CA-JNJFOC-20200121291

PATIENT
  Age: 71 Year
  Sex: Female
  Weight: 67 kg

DRUGS (2)
  1. STELARA [Suspect]
     Active Substance: USTEKINUMAB
     Indication: PSORIASIS
     Route: 058
     Dates: start: 20190704
  2. STELARA [Suspect]
     Active Substance: USTEKINUMAB

REACTIONS (8)
  - Oropharyngeal pain [Recovered/Resolved]
  - Head injury [Unknown]
  - Fall [Unknown]
  - Loss of consciousness [Unknown]
  - Productive cough [Recovered/Resolved]
  - Eczema [Recovering/Resolving]
  - Vertigo [Recovering/Resolving]
  - Nasopharyngitis [Recovered/Resolved]

NARRATIVE: CASE EVENT DATE: 20191120
